FAERS Safety Report 16490983 (Version 1)
Quarter: 2019Q3

REPORT INFORMATION
  Report Type: Spontaneous
  Country: US (occurrence: US)
  Receive Date: 20190627
  Receipt Date: 20190627
  Transmission Date: 20191004
  Serious: Yes (Hospitalization)
  Sender: FDA-Public Use
  Company Number: None

PATIENT
  Age: 66 Year
  Sex: Female

DRUGS (7)
  1. OMEPRAZOLE CAP 40 MG [Concomitant]
  2. ORENCIA [Suspect]
     Active Substance: ABATACEPT
     Indication: RHEUMATOID ARTHRITIS
     Dosage: ?          OTHER FREQUENCY:WEEKLY;?
     Route: 058
     Dates: start: 20160120
  3. ACYCLOVIR TAB 400 MG [Concomitant]
  4. TYMLOS 3120 MCG/1.56 ML [Concomitant]
  5. BENICAR TAB 5 MG [Concomitant]
  6. METHOTREXATE TAB 2.5 MG [Concomitant]
  7. FOLIC ACID TAB 1 MG [Concomitant]

REACTIONS (2)
  - Hospitalisation [None]
  - Therapy cessation [None]
